FAERS Safety Report 22399283 (Version 1)
Quarter: 2023Q2

REPORT INFORMATION
  Report Type: Report from Study
  Country: US (occurrence: US)
  Receive Date: 20230602
  Receipt Date: 20230602
  Transmission Date: 20230721
  Serious: Yes (Other)
  Sender: FDA-Public Use
  Company Number: US-ASTELLAS-2023EU001497

PATIENT
  Sex: Female

DRUGS (3)
  1. ENZALUTAMIDE [Suspect]
     Active Substance: ENZALUTAMIDE
     Indication: HER2 negative breast cancer
     Route: 048
  2. FULVESTRANT [Suspect]
     Active Substance: FULVESTRANT
     Indication: HER2 negative breast cancer
     Dosage: 500 MG, OTHER (ON DAY 1, 15 AND 29)
     Route: 030
  3. FULVESTRANT [Suspect]
     Active Substance: FULVESTRANT
     Route: 030

REACTIONS (1)
  - Urinary tract infection [Unknown]
